FAERS Safety Report 18496855 (Version 1)
Quarter: 2020Q4

REPORT INFORMATION
  Report Type: Spontaneous
  Country: US (occurrence: US)
  Receive Date: 20201112
  Receipt Date: 20201112
  Transmission Date: 20210114
  Serious: No
  Sender: FDA-Public Use
  Company Number: US-MISSION PHARMACAL COMPANY-2095869

PATIENT
  Age: 6 Year
  Sex: Male

DRUGS (1)
  1. THIOLA EC [Suspect]
     Active Substance: TIOPRONIN
     Indication: CYSTINURIA
     Route: 048
     Dates: start: 20201010

REACTIONS (4)
  - Arthralgia [Unknown]
  - Monoplegia [Recovering/Resolving]
  - Rash [Unknown]
  - Urticaria [Unknown]
